FAERS Safety Report 15655785 (Version 1)
Quarter: 2018Q4

REPORT INFORMATION
  Report Type: Spontaneous
  Country: US (occurrence: US)
  Receive Date: 20181126
  Receipt Date: 20181126
  Transmission Date: 20190205
  Serious: No
  Sender: FDA-Public Use
  Company Number: US-NOVOPROD-583039

PATIENT
  Age: 71 Year
  Sex: Female

DRUGS (4)
  1. NOVOLOG [Suspect]
     Active Substance: INSULIN ASPART
     Indication: TYPE 2 DIABETES MELLITUS
     Dosage: 24 U, QD AM
     Route: 058
     Dates: start: 2014
  2. TRESIBA [Concomitant]
     Active Substance: INSULIN DEGLUDEC
     Dosage: 18 U, QD
     Route: 058
     Dates: start: 201801
  3. NOVOLOG [Suspect]
     Active Substance: INSULIN ASPART
     Dosage: 17 U, QD
     Route: 058
     Dates: start: 201801
  4. TRESIBA [Concomitant]
     Active Substance: INSULIN DEGLUDEC
     Indication: TYPE 2 DIABETES MELLITUS
     Dosage: 24 U, QD
     Route: 058
     Dates: start: 20180105

REACTIONS (4)
  - Blood glucose increased [Unknown]
  - Feeling hot [Unknown]
  - Blood glucose decreased [Recovered/Resolved]
  - Pulse abnormal [Unknown]

NARRATIVE: CASE EVENT DATE: 20180109
